FAERS Safety Report 8718346 (Version 2)
Quarter: 2012Q4

REPORT INFORMATION
  Report Type: 
  Country: US (occurrence: US)
  Receive Date: 20120810
  Receipt Date: 20120830
  Transmission Date: 20130627
  Serious: Yes (Other)
  Sender: FDA-Public Use
  Company Number: CHPA2012US017241

PATIENT
  Age: 62 Year
  Sex: Male

DRUGS (1)
  1. GAS-X EXTRA STRENGTH [Suspect]
     Indication: FLATULENCE
     Dosage: 2 DF
     Route: 048

REACTIONS (2)
  - Palpitations [Recovered/Resolved]
  - Product quality issue [None]
